FAERS Safety Report 4705482-3 (Version None)
Quarter: 2005Q2

REPORT INFORMATION
  Report Type: 
  Country: None (occurrence: None)
  Receive Date: 20050630
  Receipt Date: 20050630
  Transmission Date: 20051028
  Serious: Yes (Other)
  Sender: FDA-Public Use
  Company Number: None

PATIENT
  Age: 58 Year
  Sex: Male
  Weight: 71.2 kg

DRUGS (14)
  1. GENTAMICIN [Suspect]
     Dosage: 80MG, Q8H, IV PIGGY
     Route: 042
     Dates: start: 20040720, end: 20040724
  2. POTASSIUM CHLORIDE [Concomitant]
  3. SPIRONOLACTONE [Concomitant]
  4. INSULIN, NPH NOVOLIN: INTERMEDIATE-ACTING [Concomitant]
  5. LISINOPRIL [Concomitant]
  6. TEMAZEPAM (RESTORIL) [Concomitant]
  7. HEPARIN NA, PORK [Concomitant]
  8. NOVOLIN R [Concomitant]
  9. SERTRALINE HCL [Concomitant]
  10. PRILOSEC [Concomitant]
  11. ASPIRIN [Concomitant]
  12. FERROUS SULFATE [Concomitant]
  13. NAFCILLIN NA MONOHYDRATE [Concomitant]
  14. FUROSEMIDE [Concomitant]

REACTIONS (1)
  - RENAL FAILURE ACUTE [None]
